FAERS Safety Report 5204297-X (Version None)
Quarter: 2007Q1

REPORT INFORMATION
  Report Type: 
  Country: None (occurrence: None)
  Receive Date: 20070110
  Receipt Date: 20060206
  Transmission Date: 20070707
  Serious: No
  Sender: FDA-Public Use
  Company Number: US-BRISTOL-MYERS SQUIBB COMPANY-13272844

PATIENT
  Age: 58 Year
  Sex: Female
  Weight: 92 kg

DRUGS (8)
  1. ABILIFY [Suspect]
     Indication: SCHIZOAFFECTIVE DISORDER
     Dosage: DURATION OF THERAPY:  OVER 2 YEARS
     Dates: end: 20051201
  2. ZOCOR [Concomitant]
     Dosage: DOSE VALUE:  DOSE DECREASED TO 20 MG
  3. ZETIA [Concomitant]
  4. AMBIEN [Concomitant]
  5. XANAX [Concomitant]
  6. DIOVAN [Concomitant]
  7. PROZAC [Concomitant]
  8. BENZTROPINE MESYLATE [Concomitant]

REACTIONS (4)
  - HEPATIC ENZYME INCREASED [None]
  - MEMORY IMPAIRMENT [None]
  - TIC [None]
  - TREMOR [None]
